FAERS Safety Report 8516675-1 (Version None)
Quarter: 2012Q3

REPORT INFORMATION
  Report Type: 
  Country: None (occurrence: None)
  Receive Date: 20120706
  Receipt Date: 20120628
  Transmission Date: 20120928
  Serious: Yes (Hospitalization, Other)
  Sender: FDA-Public Use
  Company Number: DAV-AE-MTX-12-51

PATIENT
  Age: 10 Year
  Sex: Female

DRUGS (9)
  1. METHOTREXATE/HYDROCORTISONE [Concomitant]
  2. RITUXIMAB [Concomitant]
  3. PREDNISOLONE [Concomitant]
  4. CYCLOPHOSPHAMIDE [Concomitant]
  5. DOXORUBICIN HCL [Concomitant]
  6. CYTARABINE/HYDROCORTISONE) [Concomitant]
  7. METHOTREXATE [Suspect]
     Indication: BURKITT'S LYMPHOMA
  8. VINCRISTINE [Concomitant]
  9. CYTARABINE [Concomitant]

REACTIONS (9)
  - SMALL INTESTINAL OBSTRUCTION [None]
  - FEBRILE NEUTROPENIA [None]
  - PANCYTOPENIA [None]
  - HYPERTENSION [None]
  - RENAL FAILURE [None]
  - ABDOMINAL COMPARTMENT SYNDROME [None]
  - DRUG TOLERANCE DECREASED [None]
  - TOXICITY TO VARIOUS AGENTS [None]
  - SEPSIS [None]
